FAERS Safety Report 16887588 (Version 1)
Quarter: 2019Q4

REPORT INFORMATION
  Report Type: Spontaneous
  Country: FR (occurrence: FR)
  Receive Date: 20191005
  Receipt Date: 20191005
  Transmission Date: 20200122
  Serious: Yes (Death, Other)
  Sender: FDA-Public Use
  Company Number: FR-BRISTOL-MYERS SQUIBB COMPANY-BMS-2019-095500

PATIENT
  Age: 56 Year
  Sex: Male
  Weight: 65 kg

DRUGS (1)
  1. OPDIVO [Suspect]
     Active Substance: NIVOLUMAB
     Indication: LARYNGEAL CANCER
     Dosage: 240 MILLIGRAM
     Route: 042
     Dates: start: 20190802, end: 20190802

REACTIONS (2)
  - Malignant neoplasm progression [Fatal]
  - Liver disorder [Fatal]

NARRATIVE: CASE EVENT DATE: 20190810
